FAERS Safety Report 7940769-2 (Version None)
Quarter: 2011Q4

REPORT INFORMATION
  Report Type: 
  Country: None (occurrence: None)
  Receive Date: 20111128
  Receipt Date: 20111122
  Transmission Date: 20120403
  Serious: Yes (Hospitalization, Other)
  Sender: FDA-Public Use
  Company Number: JP-PFIZER INC-2011273499

PATIENT
  Age: 52 Year
  Sex: Female

DRUGS (5)
  1. CRESTOR [Concomitant]
  2. PROVERA [Suspect]
     Indication: MENOPAUSAL SYMPTOMS
     Dosage: 2.5 MG, 1X/DAY
  3. PREMARIN [Suspect]
     Indication: MENOPAUSAL SYMPTOMS
     Dosage: 0.625 MG, 1X/DAY
  4. WARFARIN [Concomitant]
  5. TENORMIN [Concomitant]

REACTIONS (1)
  - CEREBRAL INFARCTION [None]
